FAERS Safety Report 5706886-2 (Version None)
Quarter: 2008Q2

REPORT INFORMATION
  Report Type: 
  Country: None (occurrence: None)
  Receive Date: 20080416
  Receipt Date: 20080407
  Transmission Date: 20081010
  Serious: Yes (Death, Hospitalization)
  Sender: FDA-Public Use
  Company Number: US-ROCHE-555900

PATIENT
  Age: 60 Year
  Sex: Male

DRUGS (2)
  1. PEGASYS [Suspect]
     Route: 065
     Dates: start: 20080206, end: 20080326
  2. RIBAVIRIN [Suspect]
     Route: 065
     Dates: start: 20080206, end: 20080326

REACTIONS (5)
  - DEPRESSION [None]
  - HEPATITIS C [None]
  - INTERSTITIAL LUNG DISEASE [None]
  - PNEUMONIA [None]
  - PULMONARY FIBROSIS [None]
